FAERS Safety Report 11667331 (Version 1)
Quarter: 2015Q4

REPORT INFORMATION
  Report Type: Spontaneous
  Country: US (occurrence: US)
  Receive Date: 20151027
  Receipt Date: 20151027
  Transmission Date: 20160304
  Serious: Yes (Other)
  Sender: FDA-Public Use
  Company Number: US-BAYER-2015-446554

PATIENT
  Age: 51 Year
  Sex: Female

DRUGS (2)
  1. LEVAQUIN [Suspect]
     Active Substance: LEVOFLOXACIN
     Dosage: UNK
  2. CIPRO [Suspect]
     Active Substance: CIPROFLOXACIN HYDROCHLORIDE

REACTIONS (21)
  - Neck pain [None]
  - Pain in extremity [None]
  - Abdominal pain [None]
  - Abdominal discomfort [None]
  - Osteopenia [None]
  - Irritable bowel syndrome [None]
  - Hormone level abnormal [None]
  - Balance disorder [None]
  - Myocardial infarction [None]
  - Dry skin [None]
  - Adverse drug reaction [None]
  - Hot flush [None]
  - Tremor [None]
  - Renal pain [None]
  - Back pain [None]
  - Alopecia [None]
  - Musculoskeletal pain [None]
  - Vomiting projectile [None]
  - Hyperparathyroidism [None]
  - Blood cholesterol increased [None]
  - Appendicectomy [None]
